FAERS Safety Report 23034567 (Version 1)
Quarter: 2023Q4

REPORT INFORMATION
  Report Type: Spontaneous
  Country: US (occurrence: US)
  Receive Date: 20231005
  Receipt Date: 20231005
  Transmission Date: 20240110
  Serious: Yes (Other)
  Sender: FDA-Public Use
  Company Number: US-002147023-NVSC2023US210907

PATIENT
  Age: 59 Year
  Sex: Male

DRUGS (2)
  1. DABRAFENIB [Suspect]
     Active Substance: DABRAFENIB
     Indication: Papillary thyroid cancer
     Dosage: UNK
     Route: 065
  2. TRAMETINIB [Concomitant]
     Active Substance: TRAMETINIB
     Indication: Papillary thyroid cancer
     Route: 065

REACTIONS (6)
  - Hepatotoxicity [Unknown]
  - Cranial nerve paralysis [Recovering/Resolving]
  - Renal failure [Unknown]
  - Pancreatitis [Unknown]
  - Rash [Unknown]
  - Product use in unapproved indication [Unknown]
